FAERS Safety Report 9291624 (Version 1)
Quarter: 2013Q2

REPORT INFORMATION
  Report Type: Other
  Country: GB (occurrence: GB)
  Receive Date: 20130515
  Receipt Date: 20130515
  Transmission Date: 20140414
  Serious: Yes (Other)
  Sender: FDA-Public Use
  Company Number: GB-WATSON-2013-08310

PATIENT
  Age: 25 Year
  Sex: Male
  Weight: 96 kg

DRUGS (1)
  1. SERTRALINE HYDROCHLORIDE (UNKNOWN) [Suspect]
     Indication: ANXIETY
     Dosage: 100 MG, UNKNOWN
     Route: 048
     Dates: start: 20120601, end: 20130422

REACTIONS (1)
  - Abnormal behaviour [Unknown]
